FAERS Safety Report 6168846-X (Version None)
Quarter: 2009Q2

REPORT INFORMATION
  Report Type: 
  Country: None (occurrence: None)
  Receive Date: 20090427
  Receipt Date: 20090421
  Transmission Date: 20091009
  Serious: No
  Sender: FDA-Public Use
  Company Number: US-B.I. PHARMACEUTICALS,INC./RIDGEFIELD-2009-BP-05105BP

PATIENT
  Sex: Male

DRUGS (6)
  1. SPIRIVA [Suspect]
     Indication: CHRONIC OBSTRUCTIVE PULMONARY DISEASE
     Dosage: 18MCG
     Route: 055
     Dates: start: 20090414, end: 20090417
  2. FINESTERASE [Concomitant]
     Indication: PROSTATOMEGALY
     Dates: start: 20060101
  3. TAMSULOSIN HCL [Concomitant]
     Indication: PROSTATOMEGALY
     Dates: start: 20060101
  4. LISINOPRIL [Concomitant]
     Indication: HYPERTENSION
     Dates: start: 20020101
  5. ZETIA [Concomitant]
     Indication: BLOOD CHOLESTEROL INCREASED
     Dates: start: 20040101
  6. EQUATE [Concomitant]
     Indication: SINUS CONGESTION
     Dates: start: 20060101

REACTIONS (2)
  - ABDOMINAL PAIN [None]
  - CONSTIPATION [None]
